FAERS Safety Report 24335270 (Version 1)
Quarter: 2024Q3

REPORT INFORMATION
  Report Type: Spontaneous
  Country: US (occurrence: US)
  Receive Date: 20240918
  Receipt Date: 20240918
  Transmission Date: 20241017
  Serious: No
  Sender: BIOGEN
  Company Number: US-BIOGEN-2024BI01281921

PATIENT
  Age: 68 Year
  Sex: Female

DRUGS (1)
  1. QALSODY [Suspect]
     Active Substance: TOFERSEN
     Indication: Amyotrophic lateral sclerosis
     Route: 050
     Dates: start: 20230809

REACTIONS (3)
  - Vascular procedure complication [Unknown]
  - Neurological procedural complication [Unknown]
  - CSF white blood cell count increased [Unknown]

NARRATIVE: CASE EVENT DATE: 20240716
